FAERS Safety Report 7535825-7 (Version None)
Quarter: 2011Q2

REPORT INFORMATION
  Report Type: 
  Country: None (occurrence: None)
  Receive Date: 20110607
  Receipt Date: 20110607
  Transmission Date: 20111010
  Serious: Yes (Other)
  Sender: FDA-Public Use
  Company Number: None

PATIENT
  Age: 41 Year
  Sex: Female
  Weight: 102.0593 kg

DRUGS (2)
  1. CIPRO [Suspect]
     Indication: SINUSITIS
     Dates: start: 20110601, end: 20110601
  2. CIPRO [Suspect]
     Indication: SINUSITIS
     Dates: start: 20110527, end: 20110601

REACTIONS (5)
  - ARTHRALGIA [None]
  - ARTHROPATHY [None]
  - PAIN IN EXTREMITY [None]
  - TENDONITIS [None]
  - MUSCULOSKELETAL STIFFNESS [None]
